FAERS Safety Report 5904492-8 (Version None)
Quarter: 2008Q3

REPORT INFORMATION
  Report Type: 
  Country: None (occurrence: None)
  Receive Date: 20080909
  Receipt Date: 20071015
  Transmission Date: 20090109
  Serious: Yes (Other)
  Sender: FDA-Public Use
  Company Number: 163-20785-07100832

PATIENT
  Age: 70 Year
  Sex: Female

DRUGS (2)
  1. THALOMID [Suspect]
     Indication: MULTIPLE MYELOMA
     Dosage: 100 MG, 1 IN 1 D, ORAL : 200MG-100MG, DAILY, ORAL
     Route: 048
     Dates: start: 20060426, end: 20060101
  2. THALOMID [Suspect]
     Indication: MULTIPLE MYELOMA
     Dosage: 100 MG, 1 IN 1 D, ORAL : 200MG-100MG, DAILY, ORAL
     Route: 048
     Dates: start: 20070516, end: 20070701

REACTIONS (1)
  - DEEP VEIN THROMBOSIS [None]
